FAERS Safety Report 8989696 (Version 1)
Quarter: 2012Q4

REPORT INFORMATION
  Report Type: 
  Country: US (occurrence: US)
  Receive Date: 20121227
  Receipt Date: 20121227
  Transmission Date: 20130627
  Serious: No
  Sender: FDA-Public Use
  Company Number: US-009507513-1212USA008593

PATIENT
  Age: 49 Year
  Sex: Female

DRUGS (3)
  1. MAXALT [Suspect]
     Indication: MIGRAINE
     Dosage: UNK
     Route: 048
  2. TYLENOL [Concomitant]
  3. OXYCONTIN [Concomitant]

REACTIONS (3)
  - Pain [Unknown]
  - Cyanosis [Unknown]
  - Spinal compression fracture [Unknown]
